FAERS Safety Report 20305481 (Version 2)
Quarter: 2025Q1

REPORT INFORMATION
  Report Type: Spontaneous
  Country: US (occurrence: US)
  Receive Date: 20220106
  Receipt Date: 20250103
  Transmission Date: 20250409
  Serious: Yes (Hospitalization)
  Sender: AMNEAL
  Company Number: US-AMNEAL PHARMACEUTICALS-2021-AMRX-00854

PATIENT
  Age: 43 Year
  Sex: Female
  Weight: 99.773 kg

DRUGS (7)
  1. ACTIVELLA [Suspect]
     Active Substance: ESTRADIOL\NORETHINDRONE ACETATE
     Indication: Uterine leiomyoma
     Route: 048
     Dates: start: 20180605
  2. ACTIVELLA [Suspect]
     Active Substance: ESTRADIOL\NORETHINDRONE ACETATE
     Route: 048
     Dates: start: 20190508
  3. ELAGOLIX [Suspect]
     Active Substance: ELAGOLIX
     Indication: Uterine leiomyoma
     Route: 048
     Dates: start: 20180605
  4. ELAGOLIX [Suspect]
     Active Substance: ELAGOLIX
     Dosage: 300 MG PM DOSE, EVERY 1 DAYS
     Route: 048
     Dates: start: 20190508
  5. PLACEBO [Suspect]
     Active Substance: PLACEBO
     Indication: Uterine leiomyoma
     Route: 048
     Dates: start: 20180605, end: 20190508
  6. IRON [Concomitant]
     Active Substance: IRON
     Indication: Anaemia
     Dosage: 1 TABLETS, DAILY
     Route: 048
     Dates: start: 20180608
  7. CALCIUM\CHOLECALCIFEROL [Concomitant]
     Active Substance: CALCIUM\CHOLECALCIFEROL
     Indication: Supplementation therapy
     Dosage: 1 TABLETS, DAILY
     Route: 048
     Dates: start: 20180608

REACTIONS (1)
  - Non-cardiac chest pain [Recovered/Resolved]

NARRATIVE: CASE EVENT DATE: 20190522
